FAERS Safety Report 14438133 (Version 1)
Quarter: 2018Q1

REPORT INFORMATION
  Report Type: Spontaneous
  Country: US (occurrence: US)
  Receive Date: 20180125
  Receipt Date: 20180125
  Transmission Date: 20180509
  Serious: Yes (Death, Hospitalization)
  Sender: FDA-Public Use
  Company Number: PHHY2018US008492

PATIENT
  Age: 21 Year
  Sex: Female

DRUGS (1)
  1. ACETAMINOPHEN. [Suspect]
     Active Substance: ACETAMINOPHEN
     Indication: PRODUCT USED FOR UNKNOWN INDICATION
     Route: 065

REACTIONS (9)
  - Completed suicide [Fatal]
  - Nausea [Fatal]
  - Hypoxia [Fatal]
  - Hypotension [Fatal]
  - Pulseless electrical activity [Fatal]
  - Abdominal pain [Fatal]
  - Bradycardia [Fatal]
  - Toxicity to various agents [Fatal]
  - Tachycardia [Fatal]
